FAERS Safety Report 13701997 (Version 1)
Quarter: 2017Q2

REPORT INFORMATION
  Report Type: Spontaneous
  Country: US (occurrence: US)
  Receive Date: 20170629
  Receipt Date: 20170629
  Transmission Date: 20170830
  Serious: No
  Sender: FDA-Public Use
  Company Number: US-JNJFOC-20160125016

PATIENT
  Age: 55 Year
  Sex: Male

DRUGS (1)
  1. NIZORAL A-D [Suspect]
     Active Substance: KETOCONAZOLE
     Indication: DANDRUFF
     Dosage: HALF DOLLAR SIZE DOLLOP
     Route: 061

REACTIONS (2)
  - Hair colour changes [Unknown]
  - Hair texture abnormal [Not Recovered/Not Resolved]
